FAERS Safety Report 6384527-1 (Version None)
Quarter: 2009Q3

REPORT INFORMATION
  Report Type: 
  Country: None (occurrence: None)
  Receive Date: 20090924
  Receipt Date: 20090206
  Transmission Date: 20100115
  Serious: No
  Sender: FDA-Public Use
  Company Number: US-CVT-090011

PATIENT
  Age: 67 Year
  Sex: Female

DRUGS (1)
  1. RANEXA [Suspect]
     Indication: ANGINA PECTORIS
     Dosage: 500 MG, BID, ORAL
     Route: 048
     Dates: start: 20090204

REACTIONS (2)
  - BACK PAIN [None]
  - MUSCULOSKELETAL DISCOMFORT [None]
